FAERS Safety Report 23134039 (Version 1)
Quarter: 2023Q4

REPORT INFORMATION
  Report Type: Spontaneous
  Country: US (occurrence: US)
  Receive Date: 20231101
  Receipt Date: 20231101
  Transmission Date: 20240110
  Serious: Yes (Other)
  Sender: FDA-Public Use
  Company Number: US-INTRA-CELLULAR THERAPIES, INC.-2023ICT01495

PATIENT
  Age: 50 Year
  Sex: Male

DRUGS (3)
  1. CAPLYTA [Suspect]
     Active Substance: LUMATEPERONE
     Indication: Schizophrenia
     Dosage: 42 MG
     Dates: start: 202307, end: 202309
  2. RISPERDAL [Concomitant]
     Active Substance: RISPERIDONE
     Dosage: BEING TAPERED SLOWLY
  3. RISPERDAL [Concomitant]
     Active Substance: RISPERIDONE
     Dosage: ^UPPED DOSE^

REACTIONS (1)
  - Schizophrenia [Recovering/Resolving]

NARRATIVE: CASE EVENT DATE: 20230901
